FAERS Safety Report 8611008-4 (Version None)
Quarter: 2012Q3

REPORT INFORMATION
  Report Type: 
  Country: None (occurrence: None)
  Receive Date: 20120822
  Receipt Date: 20120816
  Transmission Date: 20120928
  Serious: Yes (Other)
  Sender: FDA-Public Use
  Company Number: US-PFIZER INC-2012201149

PATIENT
  Sex: Female

DRUGS (1)
  1. LYRICA [Suspect]
     Dosage: UNK

REACTIONS (6)
  - GAIT DISTURBANCE [None]
  - HEADACHE [None]
  - FATIGUE [None]
  - POST-TRAUMATIC STRESS DISORDER [None]
  - IRRITABLE BOWEL SYNDROME [None]
  - MOOD ALTERED [None]
